FAERS Safety Report 18601343 (Version 1)
Quarter: 2020Q4

REPORT INFORMATION
  Report Type: Report from Study
  Country: CN (occurrence: CN)
  Receive Date: 20201210
  Receipt Date: 20201210
  Transmission Date: 20210114
  Serious: Yes (Death, Other)
  Sender: FDA-Public Use
  Company Number: CN-BAYER-2020-267067

PATIENT

DRUGS (2)
  1. MOXIFLOXACIN. [Suspect]
     Active Substance: MOXIFLOXACIN
     Indication: COVID-19
  2. ARBIDOL [Concomitant]
     Active Substance: UMIFENOVIR
     Indication: COVID-19

REACTIONS (5)
  - Product use in unapproved indication [None]
  - Ventricular fibrillation [Fatal]
  - Torsade de pointes [Fatal]
  - Electrocardiogram QT prolonged [None]
  - Off label use [None]
